FAERS Safety Report 4618790-1 (Version None)
Quarter: 2005Q1

REPORT INFORMATION
  Report Type: 
  Country: None (occurrence: None)
  Receive Date: 20050323
  Receipt Date: 20050309
  Transmission Date: 20050727
  Serious: Yes (Hospitalization)
  Sender: FDA-Public Use
  Company Number: B0374096A

PATIENT
  Age: 32 Year
  Sex: Male

DRUGS (4)
  1. PAXIL [Suspect]
     Indication: DEPRESSION
     Dosage: 20 MG/ IN THE MORNING
  2. ZOLPIDEM TARTRATE [Concomitant]
  3. ETHANOL [Concomitant]
  4. ENALAPRIL [Concomitant]

REACTIONS (1)
  - SUICIDE ATTEMPT [None]
